FAERS Safety Report 10056182 (Version 3)
Quarter: 2014Q4

REPORT INFORMATION
  Report Type: Spontaneous
  Country: FR (occurrence: FR)
  Receive Date: 20140403
  Receipt Date: 20141127
  Transmission Date: 20150528
  Serious: Yes (Other)
  Sender: FDA-Public Use
  Company Number: FR-ASTRAZENECA-2014SE21492

PATIENT
  Age: 16091 Day
  Sex: Male
  Weight: 76 kg

DRUGS (6)
  1. GLUCOPHAGE [Concomitant]
     Active Substance: METFORMIN HYDROCHLORIDE
     Indication: TYPE 2 DIABETES MELLITUS
     Dates: start: 200801
  2. INEXIUM [Concomitant]
     Active Substance: ESOMEPRAZOLE
  3. VALIUM [Concomitant]
     Active Substance: DIAZEPAM
     Indication: ANXIETY
     Dates: start: 20140313
  4. DEPAMIDE [Concomitant]
     Active Substance: VALPROMIDE
     Indication: BIPOLAR DISORDER
  5. XEROQUEL [Suspect]
     Active Substance: QUETIAPINE FUMARATE
     Indication: BIPOLAR I DISORDER
     Route: 048
     Dates: start: 20140317, end: 20140319
  6. THERALENE [Concomitant]
     Active Substance: TRIMEPRAZINE
     Indication: INSOMNIA
     Dates: start: 20140313

REACTIONS (1)
  - Enuresis [Recovered/Resolved]

NARRATIVE: CASE EVENT DATE: 20140317
